FAERS Safety Report 4516884-2 (Version None)
Quarter: 2005Q1

REPORT INFORMATION
  Report Type: 
  Country: None (occurrence: None)
  Receive Date: 20041029
  Receipt Date: 20040913
  Transmission Date: 20050727
  Serious: No
  Sender: FDA-Public Use
  Company Number: 2004-120302-NL

PATIENT
  Age: 31 Year
  Sex: Female
  Weight: 54.5 kg

DRUGS (4)
  1. NUVARING [Suspect]
     Indication: CONTRACEPTION
     Dosage: DF DAILY, VAGINAL
     Route: 067
     Dates: start: 20040910
  2. NUVARING [Suspect]
     Indication: OVARIAN CYST
     Dosage: DF DAILY, VAGINAL
     Route: 067
     Dates: start: 20040910
  3. ACETAMINOPHEN [Concomitant]
  4. CRYSTALLINE VIT B12 INJ [Concomitant]

REACTIONS (2)
  - ABDOMINAL PAIN [None]
  - VAGINAL MYCOSIS [None]
